FAERS Safety Report 11690773 (Version 6)
Quarter: 2017Q1

REPORT INFORMATION
  Report Type: Report from Study
  Country: FR (occurrence: FR)
  Receive Date: 20151102
  Receipt Date: 20170130
  Transmission Date: 20170428
  Serious: Yes (Life-Threatening)
  Sender: FDA-Public Use
  Company Number: FR-TEVA-606055ISR

PATIENT
  Age: 51 Year
  Sex: Male
  Weight: 83 kg

DRUGS (11)
  1. ALLOPURINOL. [Concomitant]
     Active Substance: ALLOPURINOL
     Dosage: 300 MILLIGRAM DAILY; ONGOING
     Route: 048
     Dates: start: 201307
  2. ACICLOVIR 800 [Concomitant]
     Indication: INFECTION PROPHYLAXIS
     Dosage: 1 DOSAGE FORMS DAILY; ONGOING, 800 MG DAILY
     Route: 048
     Dates: start: 201306
  3. VESANOID [Concomitant]
     Active Substance: TRETINOIN
     Indication: ACUTE MYELOID LEUKAEMIA
     Dosage: 87 MILLIGRAM DAILY; INDUCTION COURSE
     Route: 048
     Dates: start: 20130603, end: 20130709
  4. VESANOID [Concomitant]
     Active Substance: TRETINOIN
     Dosage: 90 MILLIGRAM DAILY;
     Route: 048
     Dates: start: 20151101
  5. AERIUS [Concomitant]
     Active Substance: DESLORATADINE
     Dosage: 5 MILLIGRAM DAILY;
  6. TRISENOX [Suspect]
     Active Substance: ARSENIC TRIOXIDE
     Indication: ACUTE PROMYELOCYTIC LEUKAEMIA
     Dosage: 11.46 MILLIGRAM DAILY; 1ST COURSE OF CONSOLIDATION
     Route: 042
     Dates: start: 20130722, end: 20130823
  7. TRISENOX [Suspect]
     Active Substance: ARSENIC TRIOXIDE
     Dosage: 11.46 MILLIGRAM DAILY; 2ND COURSE OF CONSOLIDATION
     Route: 042
     Dates: start: 20131007, end: 20131108
  8. BACTRIM [Concomitant]
     Active Substance: SULFAMETHOXAZOLE\TRIMETHOPRIM
     Indication: INFECTION PROPHYLAXIS
     Dosage: ONGOING
     Route: 048
     Dates: start: 20140120
  9. L-THYROXINE [Concomitant]
     Active Substance: LEVOTHYROXINE
     Indication: HYPOTHYROIDISM
     Dosage: 75 MICROGRAM DAILY; ONGOING, TOOK IN THE MORNING FASTING
     Route: 048
  10. MS DIRECT [Concomitant]
     Active Substance: MORPHINE SULFATE
     Indication: PAIN
     Dosage: 10 MILLIGRAM DAILY;
     Route: 048
     Dates: start: 201309
  11. VESANOID [Concomitant]
     Active Substance: TRETINOIN
     Dosage: 90 MILLIGRAM DAILY; MAINTENANCE TREATMENT
     Route: 048
     Dates: start: 20140113, end: 201506

REACTIONS (4)
  - Pleural effusion [Unknown]
  - Pulmonary mass [Unknown]
  - Mesothelioma malignant [Not Recovered/Not Resolved]
  - Dyspnoea [Unknown]

NARRATIVE: CASE EVENT DATE: 20151013
